FAERS Safety Report 24793558 (Version 1)
Quarter: 2024Q4

REPORT INFORMATION
  Report Type: Spontaneous
  Country: US (occurrence: US)
  Receive Date: 20241231
  Receipt Date: 20241231
  Transmission Date: 20250115
  Serious: Yes (Hospitalization)
  Sender: AMGEN
  Company Number: US-AMGEN-USASP2024252858

PATIENT
  Age: 80 Year
  Sex: Female

DRUGS (1)
  1. REPATHA [Suspect]
     Active Substance: EVOLOCUMAB
     Indication: Blood cholesterol abnormal
     Dosage: 140 MILLIGRAM, Q2WK
     Route: 058
     Dates: start: 202401

REACTIONS (5)
  - Dehydration [Unknown]
  - Blood sodium decreased [Unknown]
  - Stent placement [Unknown]
  - Device difficult to use [Unknown]
  - Device use error [Unknown]

NARRATIVE: CASE EVENT DATE: 20240101
